FAERS Safety Report 6358571-4 (Version None)
Quarter: 2009Q3

REPORT INFORMATION
  Report Type: 
  Country: None (occurrence: None)
  Receive Date: 20090914
  Receipt Date: 20090904
  Transmission Date: 20100115
  Serious: Yes (Hospitalization)
  Sender: FDA-Public Use
  Company Number: TPA2009A01947

PATIENT
  Age: 79 Year
  Sex: Male

DRUGS (2)
  1. ULORIC [Suspect]
     Indication: HYPERURICAEMIA
     Dosage: PER ORAL
     Route: 048
     Dates: start: 20090601, end: 20090601
  2. PRONTONIX (PANTOPRAZOLE) [Concomitant]

REACTIONS (2)
  - BLOOD ALKALINE PHOSPHATASE INCREASED [None]
  - JAUNDICE [None]
